FAERS Safety Report 16025827 (Version 1)
Quarter: 2019Q1

REPORT INFORMATION
  Report Type: Spontaneous
  Country: BE (occurrence: BE)
  Receive Date: 20190302
  Receipt Date: 20190302
  Transmission Date: 20190418
  Serious: Yes (Other)
  Sender: FDA-Public Use
  Company Number: BE-SUN PHARMACEUTICAL INDUSTRIES LTD-2019R1-200734

PATIENT
  Sex: Male

DRUGS (1)
  1. AZITHROMYCINE [Suspect]
     Active Substance: AZITHROMYCIN
     Indication: PRODUCT USED FOR UNKNOWN INDICATION
     Dosage: UNK
     Route: 065

REACTIONS (4)
  - Coronary artery disease [Recovering/Resolving]
  - Acute coronary syndrome [Recovering/Resolving]
  - Disease recurrence [Recovering/Resolving]
  - Vasculitis [Recovering/Resolving]
